FAERS Safety Report 11796407 (Version 1)
Quarter: 2015Q4

REPORT INFORMATION
  Report Type: Spontaneous
  Country: US (occurrence: None)
  Receive Date: 20151202
  Receipt Date: 20151202
  Transmission Date: 20160305
  Serious: No
  Sender: FDA-Public Use
  Company Number: None

PATIENT
  Age: 49 Year
  Sex: Female

DRUGS (1)
  1. ENBREL [Suspect]
     Active Substance: ETANERCEPT
     Indication: PSORIASIS
     Dosage: 50 MG  ONCE WEEKLY  SUBCUTANEOUS
     Route: 058
     Dates: start: 20150222

REACTIONS (2)
  - Arthritis [None]
  - Pain [None]

NARRATIVE: CASE EVENT DATE: 20151001
